FAERS Safety Report 8418456-6 (Version None)
Quarter: 2012Q2

REPORT INFORMATION
  Report Type: 
  Country: None (occurrence: None)
  Receive Date: 20120323
  Receipt Date: 20110216
  Transmission Date: 20120825
  Serious: Yes (Hospitalization, Other)
  Sender: FDA-Public Use
  Company Number: 163-21880-11022141

PATIENT
  Age: 83 Year
  Sex: Female

DRUGS (1)
  1. REVLIMID [Suspect]
     Indication: MULTIPLE MYELOMA
     Dosage: 5 MG, DAILY, 3 WEEKS ON, 1 WEEK OFF, PO
     Route: 048
     Dates: start: 20110127, end: 20110207

REACTIONS (3)
  - PULMONARY CONGESTION [None]
  - RASH [None]
  - ASTHENIA [None]
